FAERS Safety Report 14768681 (Version 1)
Quarter: 2018Q2

REPORT INFORMATION
  Report Type: Spontaneous
  Country: IT (occurrence: IT)
  Receive Date: 20180417
  Receipt Date: 20180417
  Transmission Date: 20180711
  Serious: Yes (Other)
  Sender: FDA-Public Use
  Company Number: IT-JNJFOC-20180414148

PATIENT
  Age: 68 Year
  Sex: Male
  Weight: 83 kg

DRUGS (5)
  1. LUCEN [Concomitant]
     Active Substance: ESOMEPRAZOLE
     Route: 048
  2. IBRUTINIB [Suspect]
     Active Substance: IBRUTINIB
     Indication: CHRONIC LYMPHOCYTIC LEUKAEMIA
     Route: 048
     Dates: start: 20141217
  3. ZEFFIX [Concomitant]
     Active Substance: LAMIVUDINE
     Route: 048
  4. ALLOPURINOL. [Concomitant]
     Active Substance: ALLOPURINOL
     Route: 048
  5. ACICLOVIR [Concomitant]
     Active Substance: ACYCLOVIR
     Route: 048

REACTIONS (1)
  - Deafness [Recovering/Resolving]

NARRATIVE: CASE EVENT DATE: 20180215
